FAERS Safety Report 14071215 (Version 1)
Quarter: 2017Q4

REPORT INFORMATION
  Report Type: Spontaneous
  Country: US (occurrence: US)
  Receive Date: 20171011
  Receipt Date: 20171011
  Transmission Date: 20180321
  Serious: No
  Sender: FDA-Public Use
  Company Number: US-009507513-1710USA005371

PATIENT
  Sex: Female

DRUGS (6)
  1. OMEGA-3 MARINE TRIGLYCERIDES [Concomitant]
     Active Substance: FISH OIL
  2. COUMADIN [Concomitant]
     Active Substance: WARFARIN SODIUM
  3. LYRICA [Concomitant]
     Active Substance: PREGABALIN
  4. ZEPATIER [Suspect]
     Active Substance: ELBASVIR\GRAZOPREVIR
     Indication: HEPATITIS C
     Dosage: 1 DF, QD (DAILY), 50-100 MG, I TABLET BY MOUTH EVERYDAY
     Route: 048
     Dates: start: 201707
  5. CALCIUM CARBONATE. [Concomitant]
     Active Substance: CALCIUM CARBONATE
  6. COMBIVENT RESPIMAT [Concomitant]
     Active Substance: ALBUTEROL SULFATE\IPRATROPIUM BROMIDE

REACTIONS (1)
  - Myalgia [Recovered/Resolved]
